FAERS Safety Report 15660470 (Version 1)
Quarter: 2018Q4

REPORT INFORMATION
  Report Type: Spontaneous
  Country: US (occurrence: US)
  Receive Date: 20181116
  Receipt Date: 20181116
  Transmission Date: 20190205
  Serious: Yes (Other)
  Sender: FDA-Public Use
  Company Number: None

PATIENT
  Age: 70 Year
  Sex: Female
  Weight: 95.25 kg

DRUGS (2)
  1. MONTALUKAST 10MG [Suspect]
     Active Substance: MONTELUKAST SODIUM
  2. SILDENAFIL 20MG [Suspect]
     Active Substance: SILDENAFIL
     Indication: ASTHMA
     Dosage: ?          QUANTITY:1 TABLET;?
     Route: 048
     Dates: start: 20180818, end: 20181001

REACTIONS (3)
  - Wrong product administered [None]
  - Cataract [None]
  - Product dispensing error [None]

NARRATIVE: CASE EVENT DATE: 20180808
